FAERS Safety Report 24625997 (Version 1)
Quarter: 2024Q4

REPORT INFORMATION
  Report Type: Report from Study
  Country: US (occurrence: US)
  Receive Date: 20241115
  Receipt Date: 20241115
  Transmission Date: 20250115
  Serious: Yes (Hospitalization)
  Sender: EISAI
  Company Number: US-Eisai-EC-2024-178937

PATIENT
  Age: 48 Year
  Sex: Female

DRUGS (5)
  1. LENVIMA [Suspect]
     Active Substance: LENVATINIB
     Indication: Product used for unknown indication
     Route: 048
     Dates: end: 2024
  2. LENVIMA [Suspect]
     Active Substance: LENVATINIB
     Route: 048
     Dates: start: 2024
  3. KEYTRUDA [Concomitant]
     Active Substance: PEMBROLIZUMAB
     Indication: Product used for unknown indication
     Route: 041
     Dates: end: 2024
  4. INLYTA [Concomitant]
     Active Substance: AXITINIB
     Indication: Product used for unknown indication
     Dates: end: 2024
  5. CABOMETYX [Concomitant]
     Active Substance: CABOZANTINIB S-MALATE
     Indication: Product used for unknown indication
     Dates: end: 2024

REACTIONS (3)
  - Chest pain [Unknown]
  - Epistaxis [Unknown]
  - Hypertension [Not Recovered/Not Resolved]

NARRATIVE: CASE EVENT DATE: 20240101
